FAERS Safety Report 11644445 (Version 3)
Quarter: 2015Q4

REPORT INFORMATION
  Report Type: Spontaneous
  Country: US (occurrence: US)
  Receive Date: 20151020
  Receipt Date: 20151030
  Transmission Date: 20160304
  Serious: Yes (Other)
  Sender: FDA-Public Use
  Company Number: CHPA2015US012299

PATIENT
  Age: 35 Year
  Sex: Female

DRUGS (3)
  1. VOLTAREN [Suspect]
     Active Substance: DICLOFENAC SODIUM
     Indication: MUSCLE SPASMS
     Dosage: NICKEL TO QUARTER SIZE
     Route: 061
     Dates: start: 201501, end: 201508
  2. VOLTAREN [Suspect]
     Active Substance: DICLOFENAC SODIUM
     Indication: ARTHROPATHY
     Dosage: A LITTLE BIT/NICKEL SIZE, QD OR BID
     Route: 061
     Dates: start: 201412, end: 201412
  3. VOLTAREN [Suspect]
     Active Substance: DICLOFENAC SODIUM
     Indication: ARTHRITIS

REACTIONS (9)
  - Drug administered at inappropriate site [Unknown]
  - Fall [Recovering/Resolving]
  - Drug dispensed to wrong patient [Unknown]
  - Wrong technique in product usage process [Unknown]
  - Arthritis [Not Recovered/Not Resolved]
  - Therapeutic response unexpected [Unknown]
  - Product use issue [Unknown]
  - Inappropriate schedule of drug administration [Unknown]
  - Pain [Recovering/Resolving]

NARRATIVE: CASE EVENT DATE: 201412
